FAERS Safety Report 5381954-6 (Version None)
Quarter: 2007Q3

REPORT INFORMATION
  Report Type: 
  Country: None (occurrence: None)
  Receive Date: 20070709
  Receipt Date: 20070628
  Transmission Date: 20080115
  Serious: Yes (Life-Threatening, Other)
  Sender: FDA-Public Use
  Company Number: FR-JNJFOC-20070605125

PATIENT
  Sex: Male
  Weight: 65 kg

DRUGS (4)
  1. INFLIXIMAB [Suspect]
     Indication: PSORIASIS
     Route: 042
  2. DOGMATIL [Concomitant]
     Indication: DEPRESSION
     Route: 048
  3. STABLON [Concomitant]
     Indication: DEPRESSION
     Route: 048
  4. QUIEBLINE [Concomitant]
     Indication: DEPRESSION
     Route: 048

REACTIONS (1)
  - LUNG NEOPLASM MALIGNANT [None]
